FAERS Safety Report 4465759-6 (Version None)
Quarter: 2004Q4

REPORT INFORMATION
  Report Type: 
  Country: None (occurrence: None)
  Receive Date: 20041001
  Receipt Date: 20040709
  Transmission Date: 20050328
  Serious: Yes (Hospitalization)
  Sender: FDA-Public Use
  Company Number: UKO04000147

PATIENT
  Age: 16 Month
  Sex: Female

DRUGS (1)
  1. WICK VAPORUB ERKALTUNGSSALBE(CAMPHOR 149.5 MG, MENTHOL 76.70 MG, THYMO [Suspect]
     Dosage: SEE IMAGE
     Route: 048

REACTIONS (2)
  - DYSPNOEA [None]
  - MEDICATION ERROR [None]
